FAERS Safety Report 11347487 (Version 1)
Quarter: 2015Q3

REPORT INFORMATION
  Report Type: Report from Study
  Country: BR (occurrence: BR)
  Receive Date: 20150806
  Receipt Date: 20150806
  Transmission Date: 20151125
  Serious: Yes (Other)
  Sender: FDA-Public Use
  Company Number: BR-ABBVIE-15K-020-1438615-00

PATIENT
  Sex: Female
  Weight: 48 kg

DRUGS (6)
  1. HUMIRA [Suspect]
     Active Substance: ADALIMUMAB
     Route: 058
  2. BONECAL D [Concomitant]
     Indication: VITAMIN SUPPLEMENTATION
     Route: 048
     Dates: start: 2014
  3. HUMIRA [Suspect]
     Active Substance: ADALIMUMAB
     Indication: RHEUMATOID ARTHRITIS
     Route: 058
     Dates: start: 20140725
  4. ENDOFOLIN [Concomitant]
     Active Substance: FOLIC ACID
     Indication: VITAMIN SUPPLEMENTATION
     Route: 048
     Dates: start: 2014
  5. ACTONEL [Concomitant]
     Active Substance: RISEDRONATE SODIUM
     Indication: BONE DECALCIFICATION
     Route: 048
     Dates: start: 2014
  6. ADDERA D3 [Concomitant]
     Active Substance: CHOLECALCIFEROL
     Indication: VITAMIN SUPPLEMENTATION
     Route: 048
     Dates: start: 2014

REACTIONS (2)
  - Spinal deformity [Recovering/Resolving]
  - Gait disturbance [Recovering/Resolving]
